FAERS Safety Report 19151801 (Version 1)
Quarter: 2021Q2

REPORT INFORMATION
  Report Type: Spontaneous
  Country: TR (occurrence: TR)
  Receive Date: 20210419
  Receipt Date: 20210419
  Transmission Date: 20210717
  Serious: Yes (Hospitalization, Other)
  Sender: FDA-Public Use
  Company Number: TR-EPICPHARMA-TR-2021EPCLIT00419

PATIENT
  Age: 72 Year
  Sex: Female

DRUGS (2)
  1. TEMOZOLOMIDE. [Concomitant]
     Active Substance: TEMOZOLOMIDE
     Indication: PRODUCT USED FOR UNKNOWN INDICATION
     Route: 048
  2. PHENYTOIN. [Suspect]
     Active Substance: PHENYTOIN
     Indication: SEIZURE PROPHYLAXIS
     Route: 048

REACTIONS (1)
  - Erythema multiforme [Recovered/Resolved]
